FAERS Safety Report 6297996-2 (Version None)
Quarter: 2009Q3

REPORT INFORMATION
  Report Type: 
  Country: None (occurrence: None)
  Receive Date: 20090805
  Receipt Date: 20090729
  Transmission Date: 20100115
  Serious: Yes (Other)
  Sender: FDA-Public Use
  Company Number: B0586979A

PATIENT
  Age: 32 Year
  Sex: Female

DRUGS (2)
  1. SEROXAT [Suspect]
     Indication: ANXIETY
     Route: 048
     Dates: start: 20041101
  2. UNKNOWN DRUG [Concomitant]
     Route: 065

REACTIONS (4)
  - AMNESIA [None]
  - DEPRESSION [None]
  - HALLUCINATION, AUDITORY [None]
  - SUICIDAL IDEATION [None]
